FAERS Safety Report 13659431 (Version 1)
Quarter: 2017Q2

REPORT INFORMATION
  Report Type: Spontaneous
  Country: DE (occurrence: DE)
  Receive Date: 20170616
  Receipt Date: 20170616
  Transmission Date: 20170830
  Serious: Yes (Hospitalization, Other)
  Sender: FDA-Public Use
  Company Number: DE-JNJFOC-20170610178

PATIENT

DRUGS (63)
  1. FENTANYL. [Suspect]
     Active Substance: FENTANYL
     Indication: BACK PAIN
     Route: 065
  2. FENTANYL. [Suspect]
     Active Substance: FENTANYL
     Indication: OSTEOARTHRITIS
     Route: 065
  3. TAPENTADOL [Suspect]
     Active Substance: TAPENTADOL
     Indication: CANCER PAIN
     Route: 065
  4. HYDROMORPHONE [Suspect]
     Active Substance: HYDROMORPHONE
     Indication: NEURALGIA
     Route: 065
  5. MORPHINE [Suspect]
     Active Substance: MORPHINE
     Indication: OSTEOPOROSIS
     Route: 065
  6. MORPHINE [Suspect]
     Active Substance: MORPHINE
     Indication: MULTIMORBIDITY
     Route: 065
  7. FENTANYL. [Suspect]
     Active Substance: FENTANYL
     Indication: MULTIMORBIDITY
     Route: 065
  8. FENTANYL. [Suspect]
     Active Substance: FENTANYL
     Indication: TRAUMATIC FRACTURE
     Route: 065
  9. TAPENTADOL [Suspect]
     Active Substance: TAPENTADOL
     Indication: NEURALGIA
     Route: 065
  10. HYDROMORPHONE [Suspect]
     Active Substance: HYDROMORPHONE
     Indication: OSTEOARTHRITIS
     Route: 065
  11. OXYCODONE [Suspect]
     Active Substance: OXYCODONE
     Indication: OSTEOARTHRITIS
     Route: 065
  12. NALOXONE W/OXYCODONE [Suspect]
     Active Substance: NALOXONE HYDROCHLORIDE\OXYCODONE HYDROCHLORIDE
     Indication: NEURALGIA
     Route: 065
  13. BUPRENORPHINE. [Suspect]
     Active Substance: BUPRENORPHINE
     Indication: INTERVERTEBRAL DISC DISORDER
     Route: 065
  14. TAPENTADOL [Suspect]
     Active Substance: TAPENTADOL
     Indication: MULTIMORBIDITY
     Route: 065
  15. TAPENTADOL [Suspect]
     Active Substance: TAPENTADOL
     Indication: BACK PAIN
     Route: 065
  16. TAPENTADOL [Suspect]
     Active Substance: TAPENTADOL
     Indication: OSTEOARTHRITIS
     Route: 065
  17. HYDROMORPHONE [Suspect]
     Active Substance: HYDROMORPHONE
     Indication: HEADACHE
     Route: 065
  18. MORPHINE [Suspect]
     Active Substance: MORPHINE
     Indication: TRAUMATIC FRACTURE
     Route: 065
  19. NALOXONE W/OXYCODONE [Suspect]
     Active Substance: NALOXONE HYDROCHLORIDE\OXYCODONE HYDROCHLORIDE
     Indication: CANCER PAIN
     Route: 065
  20. BUPRENORPHINE. [Suspect]
     Active Substance: BUPRENORPHINE
     Indication: BACK PAIN
     Route: 065
  21. BUPRENORPHINE. [Suspect]
     Active Substance: BUPRENORPHINE
     Indication: OSTEOARTHRITIS
     Route: 065
  22. TAPENTADOL [Suspect]
     Active Substance: TAPENTADOL
     Indication: TRAUMATIC FRACTURE
     Route: 065
  23. TAPENTADOL [Suspect]
     Active Substance: TAPENTADOL
     Indication: INTERVERTEBRAL DISC DISORDER
     Route: 065
  24. HYDROMORPHONE [Suspect]
     Active Substance: HYDROMORPHONE
     Indication: OSTEOPOROSIS
     Route: 065
  25. HYDROMORPHONE [Suspect]
     Active Substance: HYDROMORPHONE
     Indication: MULTIMORBIDITY
     Route: 065
  26. HYDROMORPHONE [Suspect]
     Active Substance: HYDROMORPHONE
     Indication: TRAUMATIC FRACTURE
     Route: 065
  27. MORPHINE [Suspect]
     Active Substance: MORPHINE
     Indication: BACK PAIN
     Route: 065
  28. MORPHINE [Suspect]
     Active Substance: MORPHINE
     Indication: NEURALGIA
     Route: 065
  29. OXYCODONE [Suspect]
     Active Substance: OXYCODONE
     Indication: OSTEOPOROSIS
     Route: 065
  30. OXYCODONE [Suspect]
     Active Substance: OXYCODONE
     Indication: NEURALGIA
     Route: 065
  31. BUPRENORPHINE. [Suspect]
     Active Substance: BUPRENORPHINE
     Indication: NEURALGIA
     Route: 065
  32. FENTANYL. [Suspect]
     Active Substance: FENTANYL
     Indication: OSTEOPOROSIS
     Route: 065
  33. TAPENTADOL [Suspect]
     Active Substance: TAPENTADOL
     Indication: OSTEOPOROSIS
     Route: 065
  34. HYDROMORPHONE [Suspect]
     Active Substance: HYDROMORPHONE
     Indication: INTERVERTEBRAL DISC DISORDER
     Route: 065
  35. OXYCODONE [Suspect]
     Active Substance: OXYCODONE
     Indication: TRAUMATIC FRACTURE
     Route: 065
  36. NALOXONE W/OXYCODONE [Suspect]
     Active Substance: NALOXONE HYDROCHLORIDE\OXYCODONE HYDROCHLORIDE
     Indication: OSTEOPOROSIS
     Route: 065
  37. NALOXONE W/OXYCODONE [Suspect]
     Active Substance: NALOXONE HYDROCHLORIDE\OXYCODONE HYDROCHLORIDE
     Indication: OSTEOARTHRITIS
     Route: 065
  38. BUPRENORPHINE. [Suspect]
     Active Substance: BUPRENORPHINE
     Indication: OSTEOPOROSIS
     Route: 065
  39. BUPRENORPHINE. [Suspect]
     Active Substance: BUPRENORPHINE
     Indication: CANCER PAIN
     Route: 065
  40. BUPRENORPHINE. [Suspect]
     Active Substance: BUPRENORPHINE
     Indication: HEADACHE
     Route: 065
  41. FENTANYL. [Suspect]
     Active Substance: FENTANYL
     Indication: NEURALGIA
     Route: 065
  42. FENTANYL. [Suspect]
     Active Substance: FENTANYL
     Indication: CANCER PAIN
     Route: 065
  43. HYDROMORPHONE [Suspect]
     Active Substance: HYDROMORPHONE
     Indication: BACK PAIN
     Route: 065
  44. MORPHINE [Suspect]
     Active Substance: MORPHINE
     Indication: OSTEOARTHRITIS
     Route: 065
  45. OXYCODONE [Suspect]
     Active Substance: OXYCODONE
     Indication: MULTIMORBIDITY
     Route: 065
  46. OXYCODONE [Suspect]
     Active Substance: OXYCODONE
     Indication: CANCER PAIN
     Route: 065
  47. NALOXONE W/OXYCODONE [Suspect]
     Active Substance: NALOXONE HYDROCHLORIDE\OXYCODONE HYDROCHLORIDE
     Indication: MULTIMORBIDITY
     Route: 065
  48. BUPRENORPHINE. [Suspect]
     Active Substance: BUPRENORPHINE
     Indication: MULTIMORBIDITY
     Route: 065
  49. BUPRENORPHINE. [Suspect]
     Active Substance: BUPRENORPHINE
     Indication: TRAUMATIC FRACTURE
     Route: 065
  50. FENTANYL. [Suspect]
     Active Substance: FENTANYL
     Indication: INTERVERTEBRAL DISC DISORDER
     Route: 065
  51. FENTANYL. [Suspect]
     Active Substance: FENTANYL
     Indication: HEADACHE
     Route: 065
  52. TAPENTADOL [Suspect]
     Active Substance: TAPENTADOL
     Indication: HEADACHE
     Route: 065
  53. MORPHINE [Suspect]
     Active Substance: MORPHINE
     Indication: CANCER PAIN
     Route: 065
  54. MORPHINE [Suspect]
     Active Substance: MORPHINE
     Indication: HEADACHE
     Route: 065
  55. OXYCODONE [Suspect]
     Active Substance: OXYCODONE
     Indication: BACK PAIN
     Route: 065
  56. NALOXONE W/OXYCODONE [Suspect]
     Active Substance: NALOXONE HYDROCHLORIDE\OXYCODONE HYDROCHLORIDE
     Indication: INTERVERTEBRAL DISC DISORDER
     Route: 065
  57. HYDROMORPHONE [Suspect]
     Active Substance: HYDROMORPHONE
     Indication: CANCER PAIN
     Route: 065
  58. MORPHINE [Suspect]
     Active Substance: MORPHINE
     Indication: INTERVERTEBRAL DISC DISORDER
     Route: 065
  59. OXYCODONE [Suspect]
     Active Substance: OXYCODONE
     Indication: INTERVERTEBRAL DISC DISORDER
     Route: 065
  60. OXYCODONE [Suspect]
     Active Substance: OXYCODONE
     Indication: HEADACHE
     Route: 065
  61. NALOXONE W/OXYCODONE [Suspect]
     Active Substance: NALOXONE HYDROCHLORIDE\OXYCODONE HYDROCHLORIDE
     Indication: TRAUMATIC FRACTURE
     Route: 065
  62. NALOXONE W/OXYCODONE [Suspect]
     Active Substance: NALOXONE HYDROCHLORIDE\OXYCODONE HYDROCHLORIDE
     Indication: BACK PAIN
     Route: 065
  63. NALOXONE W/OXYCODONE [Suspect]
     Active Substance: NALOXONE HYDROCHLORIDE\OXYCODONE HYDROCHLORIDE
     Indication: HEADACHE
     Route: 065

REACTIONS (4)
  - Myocardial infarction [Unknown]
  - Product use in unapproved indication [Unknown]
  - Ischaemic stroke [Unknown]
  - Off label use [Unknown]
